FAERS Safety Report 13166186 (Version 3)
Quarter: 2017Q1

REPORT INFORMATION
  Report Type: Report from Study
  Country: US (occurrence: US)
  Receive Date: 20170131
  Receipt Date: 20170216
  Transmission Date: 20170428
  Serious: Yes (Hospitalization)
  Sender: FDA-Public Use
  Company Number: US-GILEAD-2017-0255342

PATIENT
  Age: 71 Year
  Sex: Female

DRUGS (6)
  1. DILTIAZEM. [Concomitant]
     Active Substance: DILTIAZEM
  2. REVATIO [Concomitant]
     Active Substance: SILDENAFIL CITRATE
  3. AMBRISENTAN [Suspect]
     Active Substance: AMBRISENTAN
     Dosage: 5 MG, QD
     Route: 065
  4. VENTAVIS [Concomitant]
     Active Substance: ILOPROST
  5. AMBRISENTAN [Suspect]
     Active Substance: AMBRISENTAN
     Indication: PRODUCT USED FOR UNKNOWN INDICATION
     Dosage: 10 MG, QD
     Route: 065
  6. SILDENAFIL CITRATE. [Concomitant]
     Active Substance: SILDENAFIL CITRATE

REACTIONS (5)
  - Dyspnoea [Unknown]
  - Cough [Unknown]
  - Pain [Unknown]
  - Haematoma [Unknown]
  - Candida infection [Unknown]
